FAERS Safety Report 24561875 (Version 1)
Quarter: 2024Q4

REPORT INFORMATION
  Report Type: Spontaneous
  Country: US (occurrence: US)
  Receive Date: 20241029
  Receipt Date: 20241029
  Transmission Date: 20250114
  Serious: Yes (Other)
  Sender: GILEAD
  Company Number: US-GILEAD-2024-0692245

PATIENT
  Age: 68 Year
  Sex: Female

DRUGS (1)
  1. YESCARTA [Suspect]
     Active Substance: AXICABTAGENE CILOLEUCEL
     Indication: Non-Hodgkin^s lymphoma
     Route: 065
     Dates: start: 20240705, end: 20240705

REACTIONS (1)
  - Peripheral T-cell lymphoma unspecified [Not Recovered/Not Resolved]

NARRATIVE: CASE EVENT DATE: 20241009
